FAERS Safety Report 5735792-2 (Version None)
Quarter: 2008Q2

REPORT INFORMATION
  Report Type: 
  Country: None (occurrence: None)
  Receive Date: 20080513
  Receipt Date: 20080507
  Transmission Date: 20081010
  Serious: Yes (Death, Other)
  Sender: FDA-Public Use
  Company Number: SE-WYE-H03801308

PATIENT
  Age: 39 Year
  Sex: Female

DRUGS (3)
  1. EFFEXOR [Suspect]
     Dosage: TOOK AN UNKNOWN AMOUNT IN AN OVERDOSE
     Route: 048
     Dates: start: 20040427, end: 20040427
  2. ANTABUSE [Concomitant]
     Indication: ALCOHOL ABUSE
     Dosage: UNKNOWN
  3. PROPIOMAZINE MALEATE [Suspect]
     Dosage: TOOK 2 TO 3 TABLETS
     Route: 048
     Dates: start: 20040427, end: 20040427

REACTIONS (13)
  - AGITATION [None]
  - CARDIAC ARREST [None]
  - CARDIAC FAILURE [None]
  - CARDIOTOXICITY [None]
  - DISORIENTATION [None]
  - EJECTION FRACTION DECREASED [None]
  - ELECTROCARDIOGRAM QRS COMPLEX PROLONGED [None]
  - HYPOTENSION [None]
  - OVERDOSE [None]
  - PULSE ABSENT [None]
  - TACHYCARDIA [None]
  - VENTRICULAR FIBRILLATION [None]
  - VENTRICULAR TACHYCARDIA [None]
